FAERS Safety Report 20787309 (Version 4)
Quarter: 2022Q3

REPORT INFORMATION
  Report Type: Spontaneous
  Country: FR (occurrence: FR)
  Receive Date: 20220505
  Receipt Date: 20220728
  Transmission Date: 20221027
  Serious: No
  Sender: FDA-Public Use
  Company Number: FR-SANOFI-01081657

PATIENT
  Age: 74 Year
  Sex: Male

DRUGS (6)
  1. MULTAQ [Suspect]
     Active Substance: DRONEDARONE
     Dosage: 2 DF, BID, 2 TABLETS, 1 IN THE MORNING 1 IN THE EVENING
  2. MULTAQ [Suspect]
     Active Substance: DRONEDARONE
     Dosage: UNK
     Dates: start: 20220421
  3. MULTAQ [Suspect]
     Active Substance: DRONEDARONE
     Dosage: 1 DF, QD
  4. METFORMIN [Concomitant]
     Active Substance: METFORMIN HYDROCHLORIDE
  5. FLUINDIONE [Concomitant]
     Active Substance: FLUINDIONE
  6. CORDARONE [Concomitant]
     Active Substance: AMIODARONE HYDROCHLORIDE
     Dosage: 2 DF, QD

REACTIONS (5)
  - Diaphragmalgia [Recovered/Resolved]
  - Pain [Unknown]
  - Heart rate decreased [Recovered/Resolved]
  - Inappropriate schedule of product administration [Unknown]
  - Intentional product misuse [Unknown]

NARRATIVE: CASE EVENT DATE: 20220422
